FAERS Safety Report 8695067 (Version 2)
Quarter: 2013Q4

REPORT INFORMATION
  Report Type: Spontaneous
  Country: US (occurrence: US)
  Receive Date: 20120731
  Receipt Date: 20131030
  Transmission Date: 20140711
  Serious: No
  Sender: FDA-Public Use
  Company Number: US-009507513-2012SP031085

PATIENT
  Sex: Female

DRUGS (6)
  1. DULERA [Suspect]
     Dosage: 2 PUFFS BY MOUTH DAILY IN THE MORNING AND EVENING
     Route: 055
  2. FLUCONAZOLE [Suspect]
  3. NYSTATIN [Suspect]
  4. FUROSEMIDE [Concomitant]
  5. PRILOSEC [Concomitant]
  6. METICORTEN [Concomitant]
     Dosage: UNK UNK, PRN

REACTIONS (2)
  - Candida infection [Unknown]
  - Hypersensitivity [Unknown]
